FAERS Safety Report 4650702-7 (Version None)
Quarter: 2005Q2

REPORT INFORMATION
  Report Type: 
  Country: None (occurrence: None)
  Receive Date: 20050429
  Receipt Date: 20050422
  Transmission Date: 20051028
  Serious: Yes (Death)
  Sender: FDA-Public Use
  Company Number: 2005US-00521

PATIENT
  Age: 76 Year
  Sex: Male

DRUGS (9)
  1. FLUCONAZOLE TABLET (FLUCONAZOLE) TABLET, 150 MG [Suspect]
     Indication: GRAFT INFECTION
     Dosage: ORAL
     Route: 048
  2. ESOMEPRAZOLE [Concomitant]
  3. FUSIDIC ACID [Concomitant]
  4. DOXYCYCLINE [Concomitant]
  5. PRAVASTATIN [Concomitant]
  6. PREDNISOLONE [Concomitant]
  7. WARFARIN [Concomitant]
  8. DIGOXIN [Concomitant]
  9. BISOPROLOL FUMARATE [Concomitant]

REACTIONS (8)
  - CARDIOMEGALY [None]
  - DRUG INTERACTION [None]
  - DYSPNOEA [None]
  - FATIGUE [None]
  - INTERNATIONAL NORMALISED RATIO INCREASED [None]
  - MULTI-ORGAN FAILURE [None]
  - PULMONARY CONGESTION [None]
  - RHABDOMYOLYSIS [None]
